FAERS Safety Report 10058257 (Version 2)
Quarter: 2014Q2

REPORT INFORMATION
  Report Type: Spontaneous
  Country: US (occurrence: US)
  Receive Date: 20140404
  Receipt Date: 20140404
  Transmission Date: 20141212
  Serious: Yes (Disabling)
  Sender: FDA-Public Use
  Company Number: US-GE HEALTHCARE MEDICAL DIAGNOSTICS-OSCN-PR-0803S-0106

PATIENT
  Sex: Male
  Weight: 76 kg

DRUGS (5)
  1. MAGNEVIST [Suspect]
     Route: 042
     Dates: start: 20060103
  2. MAGNEVIST [Suspect]
     Route: 042
     Dates: start: 20060109
  3. MAGNEVIST [Suspect]
     Dates: start: 20060727, end: 20060727
  4. MAGNEVIST [Suspect]
     Route: 042
     Dates: start: 20061020, end: 20061020
  5. MAGNEVIST [Suspect]
     Route: 042
     Dates: start: 20070726, end: 20070726

REACTIONS (1)
  - Nephrogenic systemic fibrosis [Not Recovered/Not Resolved]
